FAERS Safety Report 7805935 (Version 6)
Quarter: 2014Q2

REPORT INFORMATION
  Report Type: Spontaneous
  Country: US (occurrence: US)
  Receive Date: 20110209
  Receipt Date: 20140507
  Transmission Date: 20141212
  Serious: Yes (Hospitalization, Other)
  Sender: FDA-Public Use
  Company Number: US-ASTRAZENECA-2011SE04370

PATIENT
  Age: 63 Year
  Sex: Female
  Weight: 77.1 kg

DRUGS (58)
  1. SYMBICORT PMDI [Suspect]
     Indication: ASTHMA
     Dosage: 160/4.5 UG, 2 PUFF BID
     Route: 055
  2. SYMBICORT PMDI [Suspect]
     Indication: BRONCHITIS CHRONIC
     Dosage: 160/4.5 UG, 2 PUFF BID
     Route: 055
  3. SYMBICORT PMDI [Suspect]
     Indication: CHRONIC OBSTRUCTIVE PULMONARY DISEASE
     Dosage: 160/4.5 UG, 2 PUFF BID
     Route: 055
  4. NEXIUM [Suspect]
     Indication: GASTROOESOPHAGEAL REFLUX DISEASE
     Route: 048
     Dates: start: 2001
  5. NEXIUM [Suspect]
     Indication: GASTROOESOPHAGEAL REFLUX DISEASE
     Route: 048
     Dates: start: 2004
  6. NEXIUM [Suspect]
     Indication: GASTROOESOPHAGEAL REFLUX DISEASE
     Route: 048
  7. CRESTOR [Suspect]
     Indication: BLOOD CHOLESTEROL INCREASED
     Route: 048
     Dates: start: 2004
  8. LISINOPRIL [Suspect]
     Indication: BLOOD PRESSURE ABNORMAL
     Route: 048
  9. LISINOPRIL [Suspect]
     Indication: BLOOD PRESSURE ABNORMAL
     Route: 048
     Dates: start: 20140206
  10. OMEPRAZOLE [Suspect]
     Indication: GASTROOESOPHAGEAL REFLUX DISEASE
     Route: 048
  11. MORPHINE PUMP [Suspect]
     Indication: PAIN
     Route: 065
     Dates: start: 2010, end: 20140424
  12. LIPITOR [Suspect]
  13. AMITRIPTYLINE [Suspect]
     Route: 065
  14. COUMADIN [Concomitant]
     Indication: DEEP VEIN THROMBOSIS
  15. COUMADIN [Concomitant]
     Indication: DEEP VEIN THROMBOSIS
  16. CREON [Concomitant]
     Indication: PANCREATITIS
     Dosage: 240000 UNIT 3 CAPSULE FOUR TIMES A DAY
     Route: 048
     Dates: start: 2004
  17. PANCREATIC ENZYMES [Concomitant]
  18. COREG [Concomitant]
     Indication: CARDIAC DISORDER
     Route: 048
  19. COREG [Concomitant]
     Indication: CARDIAC DISORDER
     Route: 048
     Dates: start: 2013
  20. VITAMIN D HIGH POTENCY [Concomitant]
     Indication: VITAMIN D
     Dosage: 1000 UNIT 2 CAPSULES DAILY
     Route: 048
     Dates: start: 2012
  21. VITAMIN D HIGH POTENCY [Concomitant]
     Indication: OSTEOPOROSIS
     Dosage: 1000 UNIT 2 CAPSULES DAILY
     Route: 048
     Dates: start: 2012
  22. VITAMIN D HIGH POTENCY [Concomitant]
     Indication: VITAMIN D
     Route: 048
     Dates: start: 2013
  23. VITAMIN D HIGH POTENCY [Concomitant]
     Indication: OSTEOPOROSIS
     Route: 048
     Dates: start: 2013
  24. LASIX [Concomitant]
     Route: 048
  25. SINGULAIR [Concomitant]
     Indication: CHRONIC OBSTRUCTIVE PULMONARY DISEASE
     Dosage: 10 MG TABLET, ONE AT NIGHT AS NEEDED
     Route: 048
  26. SINGULAIR [Concomitant]
     Indication: ASTHMA
     Dosage: 10 MG TABLET, ONE AT NIGHT AS NEEDED
     Route: 048
  27. SINGULAIR [Concomitant]
     Indication: MULTIPLE ALLERGIES
     Dosage: 10 MG TABLET, ONE AT NIGHT AS NEEDED
     Route: 048
  28. SINGULAIR [Concomitant]
     Indication: CHRONIC OBSTRUCTIVE PULMONARY DISEASE
     Route: 048
  29. SINGULAIR [Concomitant]
     Indication: ASTHMA
     Route: 048
  30. SINGULAIR [Concomitant]
     Indication: MULTIPLE ALLERGIES
     Route: 048
  31. DULCOLAX [Concomitant]
     Indication: CONSTIPATION
     Dosage: 5 MG TABLET DAILY AS NEEDED
     Route: 048
     Dates: start: 201003
  32. COLACE OTC [Concomitant]
     Indication: CONSTIPATION
     Dosage: 50 MG CAPSULE DAILY AS NEEDED
     Route: 048
     Dates: start: 201003
  33. FISH OIL [Concomitant]
     Indication: BLOOD CHOLESTEROL ABNORMAL
     Route: 048
     Dates: start: 2012
  34. FLONASE [Concomitant]
     Indication: MULTIPLE ALLERGIES
     Dosage: 50 MCG ACT SUSPENSION 2 DAILY/ 2 SPRAYS IN EACH NOSTRIL DAILY
     Route: 045
  35. WARFARIN SODIUM [Concomitant]
     Route: 048
  36. SPIRONOLACTONE [Concomitant]
     Route: 048
  37. SPIRONOLACTONE [Concomitant]
     Dosage: TWO TIMES A DAY, AS NEEDED
     Route: 048
  38. ZANAFLEX [Concomitant]
     Route: 048
  39. KLOR-CON [Concomitant]
     Route: 048
  40. NITROSTAT [Concomitant]
     Dosage: 0.4 MG TABLET UNDER LOUNGE EVERY 5 MINUTES AS NEEDED
     Route: 060
  41. PROMETHAZINE HCL [Concomitant]
     Indication: NAUSEA
     Dosage: 25 MG EVERY 6 HOURS AS NEEDED
     Route: 048
     Dates: start: 1999
  42. MARINOL [Concomitant]
     Route: 048
  43. ONDANSETRON HCL [Concomitant]
     Dosage: 4 MG EVERY SIX HOURS AS NEEDED
     Route: 048
  44. TIZANIDINE [Concomitant]
     Indication: TENSION HEADACHE
  45. FUROSEMIDE [Concomitant]
  46. KDUR [Concomitant]
     Indication: SUPPLEMENTATION THERAPY
  47. NITROQUICK [Concomitant]
     Indication: CHEST PAIN
     Dates: start: 201111
  48. ZOFRAN [Concomitant]
     Indication: NAUSEA
     Dates: start: 1999
  49. CALCIUM [Concomitant]
     Indication: MINERAL SUPPLEMENTATION
     Dates: start: 2012
  50. CALCIUM [Concomitant]
     Indication: OSTEOPOROSIS
     Dates: start: 2012
  51. ZOFANEX [Concomitant]
     Indication: CHRONIC OBSTRUCTIVE PULMONARY DISEASE
     Dosage: PRN
     Route: 055
  52. ZOFANEX [Concomitant]
     Indication: ASTHMA
     Dosage: PRN
     Route: 055
  53. ZOFANEX [Concomitant]
     Indication: BRONCHITIS CHRONIC
     Dosage: PRN
     Route: 055
  54. ZOFANEX [Concomitant]
     Indication: CHRONIC OBSTRUCTIVE PULMONARY DISEASE
     Dosage: EMERGENCY INHALER, PRN
     Route: 055
  55. ZOFANEX [Concomitant]
     Indication: ASTHMA
     Dosage: EMERGENCY INHALER, PRN
     Route: 055
  56. ZOFANEX [Concomitant]
     Indication: BRONCHITIS CHRONIC
     Dosage: EMERGENCY INHALER, PRN
     Route: 055
  57. ATROVENT [Concomitant]
     Indication: CHRONIC OBSTRUCTIVE PULMONARY DISEASE
     Dosage: PRN
     Route: 055
  58. VALIUM [Concomitant]
     Indication: TINNITUS
     Dates: start: 201306

REACTIONS (49)
  - Pancreatitis chronic [Unknown]
  - Cerebrovascular accident [Unknown]
  - Retroperitoneal haematoma [Unknown]
  - Gastric haemorrhage [Unknown]
  - Pneumonia bacterial [Unknown]
  - Full blood count decreased [Unknown]
  - Haematemesis [Unknown]
  - Abdominal pain [Recovering/Resolving]
  - Chronic obstructive pulmonary disease [Unknown]
  - Pain [Unknown]
  - Vomiting [Unknown]
  - Device failure [Unknown]
  - Ear infection viral [Not Recovered/Not Resolved]
  - Hearing impaired [Unknown]
  - Pancreatitis acute [Unknown]
  - Arterial haemorrhage [Unknown]
  - Myocardial infarction [Unknown]
  - Thrombosis [Unknown]
  - Pneumonia [Unknown]
  - Gastrooesophageal reflux disease [Unknown]
  - Vocal cord disorder [Unknown]
  - Hiatus hernia [Unknown]
  - Chest discomfort [Unknown]
  - Asthma [Unknown]
  - Impaired work ability [Not Recovered/Not Resolved]
  - Balance disorder [Unknown]
  - Hepatic steatosis [Unknown]
  - Tinnitus [Recovered/Resolved]
  - Malaise [Unknown]
  - Tremor [Unknown]
  - Agitation [Not Recovered/Not Resolved]
  - Dizziness [Unknown]
  - Stress [Unknown]
  - Disturbance in attention [Unknown]
  - Anxiety [Unknown]
  - Insomnia [Unknown]
  - Osteoporosis [Unknown]
  - Productive cough [Unknown]
  - Hallucination [Unknown]
  - Oral mucosal blistering [Unknown]
  - Blood pressure decreased [Unknown]
  - Pharyngeal oedema [Unknown]
  - Peripheral swelling [Unknown]
  - Drug hypersensitivity [Unknown]
  - Oral mucosal blistering [Unknown]
  - Adverse event [Unknown]
  - Off label use [Unknown]
  - Intentional product misuse [Unknown]
  - Drug dose omission [Unknown]
